FAERS Safety Report 4325378-9 (Version None)
Quarter: 2004Q1

REPORT INFORMATION
  Report Type: 
  Country: None (occurrence: None)
  Receive Date: 20040324
  Receipt Date: 20040308
  Transmission Date: 20041129
  Serious: Yes (Death)
  Sender: FDA-Public Use
  Company Number: 2004-06775

PATIENT
  Age: 45 Year
  Sex: Male
  Weight: 40 kg

DRUGS (6)
  1. VIREAD [Suspect]
     Indication: HIV INFECTION
     Dosage: 300 MG QD PO
     Route: 048
     Dates: start: 20040217, end: 20040226
  2. KALETRA [Concomitant]
  3. BACTRIM DS [Concomitant]
  4. VALCYTE [Concomitant]
  5. LEDERFOLIN [Concomitant]
  6. EMTRICITABINE [Concomitant]

REACTIONS (5)
  - BACK PAIN [None]
  - BLOOD CREATININE INCREASED [None]
  - BLOOD POTASSIUM DECREASED [None]
  - GLYCOSURIA [None]
  - PROTEINURIA [None]
